FAERS Safety Report 18994322 (Version 1)
Quarter: 2021Q1

REPORT INFORMATION
  Report Type: Spontaneous
  Country: US (occurrence: US)
  Receive Date: 20210311
  Receipt Date: 20210311
  Transmission Date: 20210420
  Serious: No
  Sender: FDA-Public Use
  Company Number: US-SA-2021SA081269

PATIENT
  Age: 8 Year
  Sex: Female

DRUGS (1)
  1. DUPIXENT [Suspect]
     Active Substance: DUPILUMAB
     Indication: DERMATITIS ATOPIC
     Dosage: 200 MG, QOW (200MG/1.14ML)
     Route: 058
     Dates: start: 20210126

REACTIONS (2)
  - Mouth ulceration [Unknown]
  - Product use issue [Unknown]

NARRATIVE: CASE EVENT DATE: 20210126
